FAERS Safety Report 21292660 (Version 1)
Quarter: 2022Q3

REPORT INFORMATION
  Report Type: Spontaneous
  Country: US (occurrence: US)
  Receive Date: 20220905
  Receipt Date: 20220905
  Transmission Date: 20221027
  Serious: Yes (Hospitalization, Other)
  Sender: FDA-Public Use
  Company Number: US-APOTEX-2022AP012195

PATIENT
  Age: 33 Year
  Sex: Female

DRUGS (4)
  1. LITHIUM [Suspect]
     Active Substance: LITHIUM
     Indication: Brief psychotic disorder, with postpartum onset
     Dosage: UNK
     Route: 065
     Dates: start: 202011
  2. MIRTAZAPINE [Suspect]
     Active Substance: MIRTAZAPINE
     Indication: Brief psychotic disorder, with postpartum onset
     Dosage: UNK
     Route: 065
     Dates: start: 2020
  3. OLANZAPINE [Suspect]
     Active Substance: OLANZAPINE
     Indication: Brief psychotic disorder, with postpartum onset
     Dosage: UNK
     Route: 065
     Dates: start: 2020
  4. HALOPERIDOL [Suspect]
     Active Substance: HALOPERIDOL
     Indication: Brief psychotic disorder, with postpartum onset
     Dosage: UNK
     Route: 065
     Dates: start: 2020

REACTIONS (9)
  - Acute respiratory failure [Unknown]
  - Septic shock [Unknown]
  - Pneumonia aspiration [Unknown]
  - Pyrexia [Unknown]
  - Pre-eclampsia [Unknown]
  - Lethargy [Unknown]
  - Hypotension [Unknown]
  - Toxicity to various agents [Unknown]
  - Exposure during pregnancy [Unknown]
